FAERS Safety Report 6185806-3 (Version None)
Quarter: 2009Q2

REPORT INFORMATION
  Report Type: 
  Country: None (occurrence: None)
  Receive Date: 20090511
  Receipt Date: 20090501
  Transmission Date: 20091009
  Serious: Yes (Hospitalization)
  Sender: FDA-Public Use
  Company Number: A0731239A

PATIENT
  Sex: Male

DRUGS (2)
  1. AVANDIA [Suspect]
     Route: 048
  2. AVANDAMET [Suspect]
     Route: 065
     Dates: start: 20040219

REACTIONS (3)
  - ADVERSE EVENT [None]
  - INJURY [None]
  - PAIN [None]
